FAERS Safety Report 19615745 (Version 1)
Quarter: 2021Q3

REPORT INFORMATION
  Report Type: Spontaneous
  Country: GB (occurrence: GB)
  Receive Date: 20210727
  Receipt Date: 20210727
  Transmission Date: 20211014
  Serious: Yes (Other)
  Sender: FDA-Public Use
  Company Number: GB-PFIZER INC-2021886970

PATIENT
  Age: 40 Year
  Sex: Female
  Weight: 60.32 kg

DRUGS (2)
  1. CLOTRIMAZOLE. [Suspect]
     Active Substance: CLOTRIMAZOLE
     Indication: VULVOVAGINAL CANDIDIASIS
     Dosage: 1 TABLET
     Route: 048
     Dates: start: 20170406, end: 20170406
  2. FLUCONAZOLE. [Suspect]
     Active Substance: FLUCONAZOLE
     Indication: ILL-DEFINED DISORDER
     Dosage: 1
     Route: 048
     Dates: start: 20180904, end: 20180904

REACTIONS (4)
  - Hypersensitivity [Recovered/Resolved]
  - Influenza [Recovered/Resolved]
  - Swollen tongue [Recovered/Resolved]
  - Eye swelling [Recovered/Resolved]
